FAERS Safety Report 7908673-3 (Version None)
Quarter: 2011Q4

REPORT INFORMATION
  Report Type: 
  Country: None (occurrence: None)
  Receive Date: 20111111
  Receipt Date: 20111108
  Transmission Date: 20120403
  Serious: Yes (Other)
  Sender: FDA-Public Use
  Company Number: PHHY2011AR78374

PATIENT
  Sex: Female

DRUGS (4)
  1. ZOLEDRONOC ACID [Suspect]
     Indication: OSTEOPOROSIS
     Dosage: 1 AMPOULLE ANNUALLY
     Route: 042
     Dates: start: 20090101
  2. IBUPROFEN [Concomitant]
  3. ANTIARRHYTHMICS, CLASS I AND III [Concomitant]
  4. ACETAMINOPHEN [Concomitant]

REACTIONS (4)
  - ORAL HERPES [None]
  - INFLUENZA LIKE ILLNESS [None]
  - ATRIAL FIBRILLATION [None]
  - ASTHENIA [None]
